FAERS Safety Report 9685396 (Version 1)
Quarter: 2013Q4

REPORT INFORMATION
  Report Type: Report from Study
  Country: CA (occurrence: CA)
  Receive Date: 20131113
  Receipt Date: 20131113
  Transmission Date: 20140711
  Serious: Yes (Death)
  Sender: FDA-Public Use
  Company Number: PHHY2013CA128964

PATIENT
  Age: 53 Year
  Sex: Male

DRUGS (2)
  1. ACLASTA [Suspect]
     Indication: OSTEOPOROSIS
     Dosage: UNK
     Route: 042
     Dates: start: 20111107
  2. ACLASTA [Suspect]
     Dosage: UNK
     Route: 042
     Dates: start: 20121113

REACTIONS (1)
  - Accident [Fatal]
